FAERS Safety Report 15333748 (Version 1)
Quarter: 2018Q3

REPORT INFORMATION
  Report Type: Spontaneous
  Country: US (occurrence: US)
  Receive Date: 20180830
  Receipt Date: 20180830
  Transmission Date: 20181010
  Serious: Yes (Other)
  Sender: FDA-Public Use
  Company Number: US-SA-2018SA234237

PATIENT
  Age: 41 Year
  Sex: Female

DRUGS (2)
  1. TOUJEO [Suspect]
     Active Substance: INSULIN GLARGINE
     Indication: PRODUCT USED FOR UNKNOWN INDICATION
     Dosage: 22 IU, QD
     Route: 065
  2. APIDRA [Suspect]
     Active Substance: INSULIN GLULISINE
     Indication: PRODUCT USED FOR UNKNOWN INDICATION
     Dosage: 1 UNIT/ 15 CARBS
     Route: 065

REACTIONS (3)
  - Blood glucose decreased [Unknown]
  - Loss of consciousness [Unknown]
  - Wrong drug administered [Unknown]
